FAERS Safety Report 20074226 (Version 1)
Quarter: 2021Q4

REPORT INFORMATION
  Report Type: Spontaneous
  Country: US (occurrence: None)
  Receive Date: 20211113
  Receipt Date: 20211113
  Transmission Date: 20220303
  Serious: Yes (Hospitalization)
  Sender: FDA-Public Use
  Company Number: None

PATIENT
  Age: 77 Year
  Sex: Male
  Weight: 110.7 kg

DRUGS (2)
  1. CASODEX [Suspect]
     Active Substance: BICALUTAMIDE
     Dates: end: 20180725
  2. LEUPROLIDE ACETATE [Suspect]
     Active Substance: LEUPROLIDE ACETATE
     Dates: end: 20180125

REACTIONS (6)
  - Atrial fibrillation [None]
  - Cardiac arrest [None]
  - Post procedural haemorrhage [None]
  - Aortic aneurysm [None]
  - Coronary artery disease [None]
  - Aortic valve replacement [None]

NARRATIVE: CASE EVENT DATE: 20190607
